FAERS Safety Report 6698419-1 (Version None)
Quarter: 2010Q2

REPORT INFORMATION
  Report Type: 
  Country: None (occurrence: None)
  Receive Date: 20100427
  Receipt Date: 20100420
  Transmission Date: 20101027
  Serious: Yes (Hospitalization)
  Sender: FDA-Public Use
  Company Number: US-ROCHE-698672

PATIENT
  Sex: Female
  Weight: 60 kg

DRUGS (9)
  1. TRASTUZUMAB [Suspect]
     Dosage: LAST DOSE PRIOR TO SAE: 14 APRIL 2010. TOTAL DOSE: 363 MG; FORM VIALS.
     Route: 042
     Dates: start: 20100122, end: 20100420
  2. BEVACIZUMAB [Suspect]
     Dosage: LAST DOSE PRIOR TO SAE: 14 APRIL 2010. TOTAL DOSE:907 MG; FORM VIALS
     Route: 042
     Dates: start: 20100122, end: 20100420
  3. CARBOPLATIN [Suspect]
     Dosage: TOTAL DOSE: 604 MG.FORM:VIAL. DOSE LEVEL: 6 AUC. LAST DOSE PRIOR TO SAE: 14 APRIL 2010.
     Route: 042
     Dates: start: 20100122, end: 20100420
  4. DOCETAXEL [Suspect]
     Dosage: TOTAL DOSE: 126 MG.FORM:VIAL. LAST DOSE PRIOR TO SAE: 14 APRIL 2010.
     Route: 042
     Dates: start: 20100122, end: 20100420
  5. COMPAZINE [Concomitant]
     Dates: start: 20100121
  6. DECADRON [Concomitant]
     Dates: start: 20100121
  7. HYDROCHLOROTHIAZIDE [Concomitant]
     Dates: start: 20100303
  8. VITAMIN TAB [Concomitant]
  9. LISINOPRIL [Concomitant]

REACTIONS (1)
  - COLITIS [None]
